FAERS Safety Report 8379037-6 (Version None)
Quarter: 2012Q2

REPORT INFORMATION
  Report Type: 
  Country: None (occurrence: None)
  Receive Date: 20120522
  Receipt Date: 20120522
  Transmission Date: 20120825
  Serious: Yes (Other)
  Sender: FDA-Public Use
  Company Number: None

PATIENT
  Sex: Female

DRUGS (1)
  1. SENSIPAR [Suspect]
     Dosage: 30MG QOD PO
     Route: 048
     Dates: start: 20120218, end: 20120219

REACTIONS (4)
  - HYPERHIDROSIS [None]
  - HEART RATE [None]
  - LOSS OF CONSCIOUSNESS [None]
  - HEART RATE INCREASED [None]
